FAERS Safety Report 25766846 (Version 1)
Quarter: 2025Q3

REPORT INFORMATION
  Report Type: Report from Study
  Country: US (occurrence: US)
  Receive Date: 20250905
  Receipt Date: 20250905
  Transmission Date: 20251020
  Serious: Yes (Other)
  Sender: MERCK SHARP & DOHME LLC
  Company Number: US-009507513-2325796

PATIENT
  Age: 76 Year
  Sex: Male
  Weight: 93 kg

DRUGS (40)
  1. WINREVAIR [Suspect]
     Active Substance: SOTATERCEPT-CSRK
     Indication: Pulmonary arterial hypertension
     Route: 050
     Dates: start: 20250805
  2. WINREVAIR [Suspect]
     Active Substance: SOTATERCEPT-CSRK
  3. WINREVAIR [Suspect]
     Active Substance: SOTATERCEPT-CSRK
  4. WINREVAIR [Suspect]
     Active Substance: SOTATERCEPT-CSRK
  5. NAC [Concomitant]
  6. MINERALS\VITAMINS [Concomitant]
     Active Substance: MINERALS\VITAMINS
  7. ALBUTEROL\IPRATROPIUM [Concomitant]
     Active Substance: ALBUTEROL\IPRATROPIUM
  8. PREGABALIN [Concomitant]
     Active Substance: PREGABALIN
  9. ELIQUIS [Concomitant]
     Active Substance: APIXABAN
  10. GAMMAGARD LIQUID [Concomitant]
     Active Substance: HUMAN IMMUNOGLOBULIN G
  11. FOLIC ACID [Concomitant]
     Active Substance: FOLIC ACID
  12. ALLOPURINOL [Concomitant]
     Active Substance: ALLOPURINOL
  13. PANTOPRAZOLE SODIUM [Concomitant]
     Active Substance: PANTOPRAZOLE SODIUM
  14. CYANOCOBALAMIN [Concomitant]
     Active Substance: CYANOCOBALAMIN
  15. OMEGA-3 ACIDS [Concomitant]
     Active Substance: OMEGA-3 FATTY ACIDS
  16. EYLEA [Concomitant]
     Active Substance: AFLIBERCEPT
  17. ALBUTEROL SULFATE [Concomitant]
     Active Substance: ALBUTEROL SULFATE
  18. FINASTERIDE [Concomitant]
     Active Substance: FINASTERIDE
  19. FENOFIBRATE [Concomitant]
     Active Substance: FENOFIBRATE
  20. TRESIBA [Concomitant]
     Active Substance: INSULIN DEGLUDEC
  21. TRELEGY ELLIPTA [Concomitant]
     Active Substance: FLUTICASONE FUROATE\UMECLIDINIUM BROMIDE\VILANTEROL TRIFENATATE
  22. REFRESH TEARS [Concomitant]
     Active Substance: CARBOXYMETHYLCELLULOSE SODIUM
  23. REFRESH TEARS [Concomitant]
     Active Substance: CARBOXYMETHYLCELLULOSE SODIUM
  24. GLIMEPIRIDE [Concomitant]
     Active Substance: GLIMEPIRIDE
  25. DOXAZOSIN MESYLATE [Concomitant]
     Active Substance: DOXAZOSIN MESYLATE
  26. FLUTICASONE PROPIONATE [Concomitant]
     Active Substance: FLUTICASONE PROPIONATE
  27. METOPROLOL SUCCINATE [Concomitant]
     Active Substance: METOPROLOL SUCCINATE
  28. NITROGLYCERIN [Concomitant]
     Active Substance: NITROGLYCERIN
  29. MULTIVITAMINS TABLET [Concomitant]
  30. CHLORTHALIDONE [Concomitant]
     Active Substance: CHLORTHALIDONE
  31. OXYGEN [Concomitant]
     Active Substance: OXYGEN
  32. PREDNISONE [Concomitant]
     Active Substance: PREDNISONE
  33. SPIRONOLACTONE [Concomitant]
     Active Substance: SPIRONOLACTONE
  34. SIMVASTATIN [Concomitant]
     Active Substance: SIMVASTATIN
  35. FEXOFENADINE HYDROCHLORIDE [Concomitant]
     Active Substance: FEXOFENADINE HYDROCHLORIDE
  36. HYDRALAZINE HCL [Concomitant]
     Active Substance: HYDRALAZINE HYDROCHLORIDE
  37. ACETAMINOPHEN [Concomitant]
     Active Substance: ACETAMINOPHEN
  38. FUROSEMIDE [Concomitant]
     Active Substance: FUROSEMIDE
  39. JANUVIA [Concomitant]
     Active Substance: SITAGLIPTIN PHOSPHATE
  40. VIT C TABS [Concomitant]

REACTIONS (1)
  - Rectal haemorrhage [Unknown]

NARRATIVE: CASE EVENT DATE: 20250901
